FAERS Safety Report 10012787 (Version 1)
Quarter: 2014Q1

REPORT INFORMATION
  Report Type: Spontaneous
  Country: US (occurrence: US)
  Receive Date: 20140314
  Receipt Date: 20140314
  Transmission Date: 20141002
  Serious: Yes (Hospitalization)
  Sender: FDA-Public Use
  Company Number: CHPA2014US003882

PATIENT
  Age: 90 Year
  Sex: Female

DRUGS (1)
  1. KERI ORIGINAL [Suspect]
     Indication: THERAPEUTIC SKIN CARE TOPICAL
     Dosage: UNK, QD
     Route: 061

REACTIONS (1)
  - Femur fracture [Recovered/Resolved]
